FAERS Safety Report 23816481 (Version 1)
Quarter: 2024Q2

REPORT INFORMATION
  Report Type: Report from Study
  Country: US (occurrence: US)
  Receive Date: 20240503
  Receipt Date: 20240503
  Transmission Date: 20240716
  Serious: Yes (Other)
  Sender: FDA-Public Use
  Company Number: US-JNJFOC-20240478385

PATIENT
  Age: 43 Year
  Sex: Female

DRUGS (1)
  1. SPRAVATO [Suspect]
     Active Substance: ESKETAMINE
     Indication: Depression
     Dates: start: 20240423

REACTIONS (6)
  - Loss of consciousness [Unknown]
  - Euphoric mood [Unknown]
  - Dizziness [Recovered/Resolved]
  - Somnolence [Unknown]
  - Fatigue [Unknown]
  - Product use complaint [Unknown]

NARRATIVE: CASE EVENT DATE: 20240423
